APPROVED DRUG PRODUCT: ERLEADA
Active Ingredient: APALUTAMIDE
Strength: 240MG
Dosage Form/Route: TABLET;ORAL
Application: N210951 | Product #002
Applicant: JANSSEN BIOTECH INC
Approved: Feb 17, 2023 | RLD: Yes | RS: Yes | Type: RX

PATENTS:
Patent 12303497 | Expires: Jan 30, 2040
Patent 12303497 | Expires: Jan 30, 2040
Patent RE49353 | Expires: Sep 23, 2033
Patent 8445507 | Expires: Sep 15, 2030
Patent 8445507 | Expires: Sep 15, 2030
Patent 10849888 | Expires: Sep 23, 2033
Patent 10702508 | Expires: Apr 30, 2038
Patent 9884054 | Expires: Sep 23, 2033
Patent 8802689 | Expires: Mar 27, 2027
Patent 8802689 | Expires: Mar 27, 2027
Patent 11963952 | Expires: Jan 30, 2040
Patent 9481663 | Expires: Jun 4, 2033
Patent 9481663 | Expires: Jun 4, 2033
Patent 9987261 | Expires: Mar 27, 2027
Patent 9388159 | Expires: Mar 27, 2027
Patent 12303493 | Expires: Dec 3, 2035